FAERS Safety Report 13891541 (Version 13)
Quarter: 2020Q3

REPORT INFORMATION
  Report Type: Spontaneous
  Country: US (occurrence: US)
  Receive Date: 20170822
  Receipt Date: 20200824
  Transmission Date: 20201102
  Serious: Yes (Congenital Anomaly, Other)
  Sender: FDA-Public Use
  Company Number: PHEH2017US026455

PATIENT
  Sex: Male

DRUGS (1)
  1. ZOFRAN [Suspect]
     Active Substance: ONDANSETRON HYDROCHLORIDE
     Indication: FOETAL EXPOSURE DURING PREGNANCY
     Dosage: MOTHER^S DOSE: 4 MG, BID
     Route: 064

REACTIONS (87)
  - Right atrial dilatation [Unknown]
  - Wrist fracture [Unknown]
  - Mitral valve stenosis [Unknown]
  - Viral infection [Unknown]
  - Upper respiratory tract infection [Unknown]
  - Otitis media [Unknown]
  - Reading disorder [Unknown]
  - Nasal congestion [Unknown]
  - Pyrexia [Unknown]
  - Cough [Unknown]
  - Cognitive disorder [Unknown]
  - Congenital pulmonary artery anomaly [Unknown]
  - Pulmonary hypoplasia [Unknown]
  - Right ventricular hypertrophy [Unknown]
  - Pneumonia [Unknown]
  - Tricuspid valve incompetence [Unknown]
  - Pulmonary valve incompetence [Unknown]
  - Bruxism [Unknown]
  - Learning disability [Unknown]
  - Hand fracture [Unknown]
  - Disturbance in social behaviour [Unknown]
  - Decreased eye contact [Unknown]
  - Dysgraphia [Unknown]
  - Right atrial enlargement [Unknown]
  - Multiple congenital abnormalities [Unknown]
  - Otitis media chronic [Unknown]
  - Pulmonary artery dilatation [Unknown]
  - Bundle branch block right [Unknown]
  - Right ventricular dilatation [Unknown]
  - Radius fracture [Unknown]
  - Foetal exposure during pregnancy [Unknown]
  - Gastroenteritis [Unknown]
  - Cardiomegaly [Unknown]
  - Sinus bradycardia [Unknown]
  - Sleep apnoea syndrome [Unknown]
  - Snoring [Unknown]
  - Language disorder [Unknown]
  - Conduction disorder [Unknown]
  - Somatic symptom disorder [Unknown]
  - Memory impairment [Unknown]
  - Dizziness [Unknown]
  - Staring [Unknown]
  - Disturbance in attention [Unknown]
  - School refusal [Unknown]
  - Communication disorder [Unknown]
  - Pulmonary artery stenosis congenital [Unknown]
  - Cellulitis [Unknown]
  - Mental impairment [Unknown]
  - Adenoidal hypertrophy [Unknown]
  - Tonsillar hypertrophy [Unknown]
  - Developmental delay [Unknown]
  - Hypersensitivity [Unknown]
  - Heart disease congenital [Unknown]
  - Mitral valve incompetence [Unknown]
  - Conductive deafness [Unknown]
  - Headache [Unknown]
  - Ear pain [Unknown]
  - Gastrooesophageal reflux disease [Unknown]
  - Neck pain [Unknown]
  - Attention deficit hyperactivity disorder [Unknown]
  - Psychomotor hyperactivity [Unknown]
  - Apnoea [Unknown]
  - Autism spectrum disorder [Unknown]
  - Injury [Unknown]
  - Onychophagia [Unknown]
  - Ear swelling [Unknown]
  - Aggression [Unknown]
  - Depression [Unknown]
  - Impaired reasoning [Unknown]
  - Left ventricular hypertrophy [Unknown]
  - Cardiac murmur [Unknown]
  - Sinus arrhythmia [Unknown]
  - Rhinitis allergic [Unknown]
  - Arthropod bite [Unknown]
  - Arthralgia [Unknown]
  - Ear infection [Unknown]
  - Crying [Unknown]
  - Fine motor skill dysfunction [Unknown]
  - Atrial septal defect [Unknown]
  - Left-to-right cardiac shunt [Unknown]
  - Deafness [Unknown]
  - Dyslexia [Unknown]
  - Speech disorder [Unknown]
  - Anxiety [Unknown]
  - Decreased appetite [Unknown]
  - Frustration tolerance decreased [Unknown]
  - Restlessness [Unknown]
